FAERS Safety Report 25172242 (Version 1)
Quarter: 2025Q2

REPORT INFORMATION
  Report Type: Spontaneous
  Country: US (occurrence: US)
  Receive Date: 20250408
  Receipt Date: 20250408
  Transmission Date: 20250716
  Serious: No
  Sender: ROCHE
  Company Number: US-ROCHE-10000250907

PATIENT
  Sex: Female

DRUGS (1)
  1. XOLAIR [Suspect]
     Active Substance: OMALIZUMAB
     Indication: Product used for unknown indication
     Dosage: EXPIRATION DATE WAS EITHER -JUN-2025 OR -OCT-2025
     Route: 058
     Dates: start: 202501, end: 202503

REACTIONS (3)
  - Product storage error [Unknown]
  - No adverse event [Unknown]
  - Product dose omission issue [Unknown]
